FAERS Safety Report 20253985 (Version 2)
Quarter: 2022Q1

REPORT INFORMATION
  Report Type: Spontaneous
  Country: JP (occurrence: JP)
  Receive Date: 20211230
  Receipt Date: 20220204
  Transmission Date: 20220423
  Serious: Yes (Hospitalization, Other)
  Sender: FDA-Public Use
  Company Number: JP-UCBSA-2021060781

PATIENT
  Age: 88 Year
  Sex: Female

DRUGS (14)
  1. XYZAL [Suspect]
     Active Substance: LEVOCETIRIZINE DIHYDROCHLORIDE
     Indication: Product used for unknown indication
     Dosage: UNK
  2. FAMOTIDINE [Suspect]
     Active Substance: FAMOTIDINE
     Indication: Product used for unknown indication
     Dosage: UNK
  3. CELECOXIB [Suspect]
     Active Substance: CELECOXIB
     Indication: Product used for unknown indication
     Dosage: UNK
  4. DULOXETINE [Suspect]
     Active Substance: DULOXETINE
     Indication: Product used for unknown indication
     Dosage: UNK
  5. AMLODIPINE [Suspect]
     Active Substance: AMLODIPINE BESYLATE
     Indication: Product used for unknown indication
     Dosage: UNK
  6. VIBEGRON [Suspect]
     Active Substance: VIBEGRON
     Indication: Product used for unknown indication
     Dosage: UNK
  7. ETIZOLAM [Suspect]
     Active Substance: ETIZOLAM
     Indication: Product used for unknown indication
     Dosage: UNK
  8. BUCILLAMINE [Concomitant]
     Active Substance: BUCILLAMINE
     Indication: Product used for unknown indication
     Dosage: UNK
  9. ALFACALCIDOL [Concomitant]
     Active Substance: ALFACALCIDOL
     Indication: Product used for unknown indication
     Dosage: UNK
  10. ACETAMINOPHEN [Concomitant]
     Active Substance: ACETAMINOPHEN
     Indication: Product used for unknown indication
     Dosage: UNK
  11. PREDNISOLONE [Concomitant]
     Active Substance: PREDNISOLONE
     Indication: Product used for unknown indication
     Dosage: UNK
  12. AZOSEMIDE [Concomitant]
     Active Substance: AZOSEMIDE
     Indication: Product used for unknown indication
     Dosage: UNK
  13. MAGNESIUM OXIDE [Concomitant]
     Active Substance: MAGNESIUM OXIDE
     Indication: Product used for unknown indication
     Dosage: UNK
  14. SENNOSIDES [Concomitant]
     Active Substance: SENNOSIDES
     Indication: Product used for unknown indication
     Dosage: UNK

REACTIONS (7)
  - Femur fracture [Unknown]
  - Urinary retention postoperative [Recovering/Resolving]
  - Fall [Unknown]
  - Decreased appetite [Recovering/Resolving]
  - Somnolence [Recovering/Resolving]
  - Hypotension [Recovering/Resolving]
  - Defaecation disorder [Recovering/Resolving]
